FAERS Safety Report 19488099 (Version 1)
Quarter: 2021Q3

REPORT INFORMATION
  Report Type: Spontaneous
  Country: US (occurrence: US)
  Receive Date: 20210702
  Receipt Date: 20210702
  Transmission Date: 20211014
  Serious: No
  Sender: FDA-Public Use
  Company Number: US-ASTRAZENECA-2021A516266

PATIENT
  Age: 60 Year
  Sex: Male

DRUGS (4)
  1. FARXIGA [Suspect]
     Active Substance: DAPAGLIFLOZIN PROPANEDIOL
     Indication: TYPE 2 DIABETES MELLITUS
     Route: 048
     Dates: start: 20210602, end: 20210608
  2. JARDIANCE [Concomitant]
     Active Substance: EMPAGLIFLOZIN
     Dosage: UNKNOWN
     Route: 065
  3. FARXIGA [Suspect]
     Active Substance: DAPAGLIFLOZIN PROPANEDIOL
     Indication: CORONARY ARTERY DISEASE
     Route: 048
     Dates: start: 20210602, end: 20210608
  4. FARXIGA [Suspect]
     Active Substance: DAPAGLIFLOZIN PROPANEDIOL
     Indication: DISEASE RISK FACTOR
     Route: 048
     Dates: start: 20210602, end: 20210608

REACTIONS (4)
  - Condition aggravated [Unknown]
  - Burning sensation [Unknown]
  - Feeling abnormal [Unknown]
  - Fungal infection [Unknown]
